FAERS Safety Report 25210990 (Version 3)
Quarter: 2025Q2

REPORT INFORMATION
  Report Type: Spontaneous
  Country: US (occurrence: US)
  Receive Date: 20250417
  Receipt Date: 20250529
  Transmission Date: 20250717
  Serious: No
  Sender: PFIZER
  Company Number: US-PFIZER INC-202500069193

PATIENT
  Age: 63 Year
  Sex: Female
  Weight: 60.5 kg

DRUGS (1)
  1. NIVESTYM [Suspect]
     Active Substance: FILGRASTIM-AAFI
     Indication: Autoimmune neutropenia
     Dosage: 300 UG, 2X/WEEK
     Route: 058
     Dates: start: 20250325

REACTIONS (3)
  - Poor quality device used [Unknown]
  - Syringe issue [Unknown]
  - Off label use [Unknown]

NARRATIVE: CASE EVENT DATE: 20250301
